FAERS Safety Report 9479254 (Version 2)
Quarter: 2013Q3

REPORT INFORMATION
  Report Type: Spontaneous
  Country: US (occurrence: US)
  Receive Date: 20130827
  Receipt Date: 20130827
  Transmission Date: 20140515
  Serious: Yes (Hospitalization)
  Sender: FDA-Public Use
  Company Number: US-GILEAD-2013-0081743

PATIENT
  Age: 54 Year
  Sex: Male

DRUGS (2)
  1. LETAIRIS [Suspect]
     Indication: PRODUCT USED FOR UNKNOWN INDICATION
     Dosage: 5 MG, QD
     Dates: start: 20130814, end: 20130821
  2. SILDENAFIL [Concomitant]

REACTIONS (9)
  - Malaise [Unknown]
  - Abdominal distension [Unknown]
  - Pulmonary fibrosis [Unknown]
  - Sleep disorder due to general medical condition, insomnia type [Unknown]
  - Influenza like illness [Unknown]
  - Dysstasia [Unknown]
  - Dyspnoea [Unknown]
  - Headache [Unknown]
  - Headache [Unknown]
